FAERS Safety Report 6834202-1 (Version None)
Quarter: 2010Q3

REPORT INFORMATION
  Report Type: 
  Country: None (occurrence: None)
  Receive Date: 20100712
  Receipt Date: 20070702
  Transmission Date: 20110219
  Serious: Yes (Disabling)
  Sender: FDA-Public Use
  Company Number: US-PFIZER INC-2007024549

PATIENT
  Sex: Female
  Weight: 44 kg

DRUGS (10)
  1. CHANTIX [Suspect]
     Indication: SMOKING CESSATION THERAPY
     Dates: start: 20070304, end: 20070318
  2. LYRICA [Suspect]
  3. COREG [Concomitant]
  4. ALTACE [Concomitant]
  5. LASIX [Concomitant]
  6. POTASSIUM [Concomitant]
  7. DIGOXIN [Concomitant]
  8. ACETYLSALICYLIC ACID [Concomitant]
  9. DURAGESIC-100 [Concomitant]
  10. AMBIEN [Concomitant]

REACTIONS (5)
  - BEDRIDDEN [None]
  - INSOMNIA [None]
  - PAIN [None]
  - PRURITUS [None]
  - VOMITING [None]
